FAERS Safety Report 17917896 (Version 1)
Quarter: 2020Q2

REPORT INFORMATION
  Report Type: Report from Study
  Country: None (occurrence: DE)
  Receive Date: 20200619
  Receipt Date: 20200619
  Transmission Date: 20200714
  Serious: Yes (Hospitalization)
  Sender: FDA-Public Use
  Company Number: DE-ABBVIE-20K-062-3452150-00

PATIENT
  Sex: Male

DRUGS (2)
  1. DUODOPA [Suspect]
     Active Substance: CARBIDOPA\LEVODOPA
     Dosage: MD: 11ML, CRD: 4.2ML/H, ED: 2ML
     Route: 050
     Dates: start: 202005
  2. DUODOPA [Suspect]
     Active Substance: CARBIDOPA\LEVODOPA
     Indication: PARKINSON^S DISEASE
     Dosage: MD: 11ML, CRD: 3.4ML/H, ED: 2ML
     Route: 050
     Dates: start: 20191211, end: 202005

REACTIONS (1)
  - Mobility decreased [Recovered/Resolved]
